FAERS Safety Report 4500924-0 (Version None)
Quarter: 2004Q4

REPORT INFORMATION
  Report Type: 
  Country: None (occurrence: None)
  Receive Date: 20041110
  Receipt Date: 20041029
  Transmission Date: 20050328
  Serious: Yes (Other)
  Sender: FDA-Public Use
  Company Number: S04-USA-03694-01

PATIENT
  Age: 10 Year
  Sex: Male
  Weight: 30.8446 kg

DRUGS (1)
  1. CELEXA [Suspect]
     Indication: DEPRESSION
     Dosage: 10 MG QD PO
     Route: 048
     Dates: start: 20030101, end: 20040701

REACTIONS (2)
  - GROWTH RETARDATION [None]
  - INSULIN-LIKE GROWTH FACTOR DECREASED [None]
